FAERS Safety Report 5283121-3 (Version None)
Quarter: 2007Q2

REPORT INFORMATION
  Report Type: 
  Country: None (occurrence: None)
  Receive Date: 20070402
  Receipt Date: 20070320
  Transmission Date: 20071010
  Serious: Yes (Other)
  Sender: FDA-Public Use
  Company Number: US-ELI_LILLY_AND_COMPANY-US200703004071

PATIENT
  Age: 22 Year
  Sex: Male

DRUGS (6)
  1. STRATTERA [Suspect]
     Indication: ATTENTION DEFICIT/HYPERACTIVITY DISORDER
     Dosage: 40 MG, UNK
  2. STRATTERA [Suspect]
     Dosage: 60 MG, UNK
  3. NARCAN [Concomitant]
  4. NEURONTIN [Concomitant]
  5. RITALIN [Concomitant]
  6. ULTRAM [Concomitant]

REACTIONS (1)
  - HAEMATEMESIS [None]
